FAERS Safety Report 10202702 (Version 2)
Quarter: 2014Q2

REPORT INFORMATION
  Report Type: Report from Study
  Country: US (occurrence: US)
  Receive Date: 20140528
  Receipt Date: 20140616
  Transmission Date: 20141212
  Serious: Yes (Other)
  Sender: FDA-Public Use
  Company Number: US-ABBVIE-14P-163-1240514-00

PATIENT
  Age: 23 Year
  Sex: Male
  Weight: 63.11 kg

DRUGS (2)
  1. HUMIRA [Suspect]
     Indication: CROHN^S DISEASE
     Dates: start: 2009, end: 2010
  2. HUMIRA [Suspect]
     Dates: start: 201404, end: 201404

REACTIONS (5)
  - Intestinal fistula [Recovering/Resolving]
  - Gastrointestinal inflammation [Recovering/Resolving]
  - Crohn^s disease [Recovering/Resolving]
  - Back pain [Unknown]
  - Crohn^s disease [Not Recovered/Not Resolved]
